FAERS Safety Report 25870709 (Version 1)
Quarter: 2025Q4

REPORT INFORMATION
  Report Type: Spontaneous
  Country: US (occurrence: None)
  Receive Date: 20251001
  Receipt Date: 20251001
  Transmission Date: 20260118
  Serious: Yes (Other)
  Sender: FDA-CTU
  Company Number: None

PATIENT
  Age: 30 Year
  Sex: Female
  Weight: 140.6 kg

DRUGS (1)
  1. INFED [Suspect]
     Active Substance: IRON DEXTRAN
     Dosage: OTHER FREQUENCY : ONCE;?
     Route: 042

REACTIONS (4)
  - Throat irritation [None]
  - Cough [None]
  - Feeling abnormal [None]
  - Presyncope [None]

NARRATIVE: CASE EVENT DATE: 20250224
